FAERS Safety Report 9490609 (Version 1)
Quarter: 2013Q3

REPORT INFORMATION
  Report Type: Report from Study
  Country: SG (occurrence: SG)
  Receive Date: 20130830
  Receipt Date: 20130830
  Transmission Date: 20140515
  Serious: Yes (Hospitalization)
  Sender: FDA-Public Use
  Company Number: PHHY2013SG092052

PATIENT
  Age: 58 Year
  Sex: Female

DRUGS (4)
  1. TASIGNA [Suspect]
     Indication: CHRONIC MYELOID LEUKAEMIA
     Dosage: 800 MG, UNK
     Route: 048
     Dates: start: 20110325
  2. AMLODIPINE BESILATE [Concomitant]
  3. ENALAPRIL MALEATE [Concomitant]
  4. GLIPIZIDE [Concomitant]

REACTIONS (3)
  - Full blood count decreased [Not Recovered/Not Resolved]
  - Syncope [Not Recovered/Not Resolved]
  - Blood glucose decreased [Not Recovered/Not Resolved]
